FAERS Safety Report 11213479 (Version 1)
Quarter: 2015Q2

REPORT INFORMATION
  Report Type: Spontaneous
  Country: US (occurrence: US)
  Receive Date: 20150623
  Receipt Date: 20150623
  Transmission Date: 20150821
  Serious: Yes (Hospitalization, Other)
  Sender: FDA-Public Use
  Company Number: US-ASTRAZENECA-2012SE02815

PATIENT
  Age: 59 Year
  Sex: Male
  Weight: 65.8 kg

DRUGS (11)
  1. TEMAZEPAM. [Concomitant]
     Active Substance: TEMAZEPAM
     Indication: SLEEP DISORDER
     Route: 048
     Dates: start: 2012
  2. TAMSULOSIN [Concomitant]
     Active Substance: TAMSULOSIN
     Indication: URINARY TRACT DISORDER
     Route: 048
  3. PANTOPRAZOLE [Concomitant]
     Active Substance: PANTOPRAZOLE SODIUM
     Indication: DUODENAL ULCER
     Route: 048
     Dates: start: 1990
  4. XARELTO [Concomitant]
     Active Substance: RIVAROXABAN
     Indication: ANTICOAGULANT THERAPY
     Route: 048
  5. SEROQUEL [Suspect]
     Active Substance: QUETIAPINE FUMARATE
     Indication: BIPOLAR DISORDER
     Route: 048
  6. SEROQUEL [Suspect]
     Active Substance: QUETIAPINE FUMARATE
     Indication: BIPOLAR DISORDER
     Route: 048
  7. NARDIL [Concomitant]
     Active Substance: PHENELZINE SULFATE
     Indication: BIPOLAR DISORDER
     Route: 048
     Dates: start: 1989
  8. COLACE [Concomitant]
     Active Substance: DOCUSATE SODIUM
     Indication: ABDOMINAL DISCOMFORT
     Route: 048
  9. THORAZINE [Concomitant]
     Active Substance: CHLORPROMAZINE
     Indication: BIPOLAR DISORDER
     Route: 048
     Dates: start: 201502
  10. LEVOTHYROXINE [Concomitant]
     Active Substance: LEVOTHYROXINE
     Indication: THYROID DISORDER
     Route: 048
     Dates: start: 1990
  11. CLONAZEPAM. [Concomitant]
     Active Substance: CLONAZEPAM
     Indication: ANXIETY
     Route: 048
     Dates: start: 201412

REACTIONS (8)
  - Intentional product misuse [Unknown]
  - Cervical vertebral fracture [Recovered/Resolved]
  - Balance disorder [Not Recovered/Not Resolved]
  - Depression [Recovered/Resolved]
  - Adverse event [Not Recovered/Not Resolved]
  - Nervousness [Unknown]
  - Pulmonary embolism [Recovered/Resolved]
  - Thrombosis [Recovered/Resolved]

NARRATIVE: CASE EVENT DATE: 2009
